FAERS Safety Report 17899422 (Version 1)
Quarter: 2020Q2

REPORT INFORMATION
  Report Type: Other
  Country: ES (occurrence: ES)
  Receive Date: 20200616
  Receipt Date: 20200616
  Transmission Date: 20200714
  Serious: Yes (Hospitalization)
  Sender: FDA-Public Use
  Company Number: ES-CADILA HEALTHCARE LIMITED-ES-ZYDUS-052167

PATIENT

DRUGS (6)
  1. ALENDRONIC ACID [Concomitant]
     Active Substance: ALENDRONIC ACID
     Indication: OSTEOPOROSIS
     Route: 048
     Dates: start: 20171212
  2. ISONIAZID;PYRIDOXINE [Suspect]
     Active Substance: ISONIAZID\PYRIDOXINE
     Indication: TUBERCULOSIS
     Dosage: 300 MILLIGRAM
     Route: 048
     Dates: start: 20191008
  3. ACENOCUMAROL [Concomitant]
     Active Substance: ACENOCOUMAROL
     Indication: CONGENITAL HYPERCOAGULATION
     Route: 048
     Dates: start: 20180409
  4. PREDNISONA [Concomitant]
     Active Substance: PREDNISONE
     Indication: POLYCHONDRITIS
     Route: 048
     Dates: start: 20191105, end: 20191111
  5. FLUCONAZOLE. [Suspect]
     Active Substance: FLUCONAZOLE
     Indication: OESOPHAGEAL CANDIDIASIS
     Dosage: 200 MILLIGRAM
     Route: 048
     Dates: start: 20191105, end: 20191119
  6. LINAGLIPTIN;METFORMIN [Concomitant]
     Active Substance: LINAGLIPTIN\METFORMIN HYDROCHLORIDE
     Indication: DIABETES MELLITUS
     Route: 048
     Dates: start: 20171212, end: 20191111

REACTIONS (1)
  - Neutrophilic dermatosis [Not Recovered/Not Resolved]

NARRATIVE: CASE EVENT DATE: 20191110
